FAERS Safety Report 6937426-8 (Version None)
Quarter: 2010Q3

REPORT INFORMATION
  Report Type: 
  Country: None (occurrence: None)
  Receive Date: 20100823
  Receipt Date: 20100813
  Transmission Date: 20110219
  Serious: Yes (Hospitalization)
  Sender: FDA-Public Use
  Company Number: US-US-EMD SERONO, INC.-7004383

PATIENT
  Sex: Female
  Weight: 53 kg

DRUGS (24)
  1. REBIF [Suspect]
     Indication: MULTIPLE SCLEROSIS
     Route: 058
     Dates: start: 20100201, end: 20100510
  2. ANTIDEPRESSANTS [Concomitant]
     Indication: DEPRESSION
  3. ADVAIR DISKUS 100/50 [Concomitant]
     Dates: start: 20100722
  4. ASPIRIN [Concomitant]
     Dates: start: 20081222
  5. CLONAZEPAM [Concomitant]
     Route: 048
     Dates: start: 20090105
  6. IPRATROPIUM BROMIDE AND ALBUTEROL SULFATE [Concomitant]
     Dates: start: 20081119
  7. LEVAQUIN [Concomitant]
     Dates: start: 20100722
  8. LUNESTA [Concomitant]
     Indication: SLEEP DISORDER
     Dates: start: 20091112
  9. MORPHINE SULFATE [Concomitant]
     Indication: PAIN
     Dates: start: 20081119
  10. MULTI-VITAMINS [Concomitant]
     Dates: start: 20070904
  11. NASONEX [Concomitant]
     Dates: start: 20090602
  12. NASONEX [Concomitant]
     Dates: start: 20090602
  13. PAROXETINE HYDROCHLORIDE [Concomitant]
     Dates: start: 20070904
  14. PREDNISONE [Concomitant]
     Route: 048
     Dates: start: 20090617
  15. PREDNISONE [Concomitant]
     Route: 048
  16. PREDNISONE [Concomitant]
     Route: 048
  17. PREDNISONE [Concomitant]
     Route: 048
  18. PROMETHAZINE HCL [Concomitant]
     Route: 048
     Dates: start: 20100521
  19. PROVENTIL-HFA [Concomitant]
     Indication: COUGH
     Dates: start: 20090402
  20. PROVENTIL-HFA [Concomitant]
     Indication: WHEEZING
  21. SPRIVA HANDIHALER [Concomitant]
     Dates: start: 20070904
  22. VITAMIN B COMPLEX CAP [Concomitant]
     Dates: start: 20070904
  23. ASCORBIC ACID [Concomitant]
     Dates: start: 20091224
  24. MORPHINE SULFATE [Concomitant]
     Dates: start: 20070904

REACTIONS (2)
  - BRONCHITIS [None]
  - DEPRESSION [None]
